FAERS Safety Report 8296240-4 (Version None)
Quarter: 2012Q2

REPORT INFORMATION
  Report Type: 
  Country: None (occurrence: None)
  Receive Date: 20120418
  Receipt Date: 20120404
  Transmission Date: 20120825
  Serious: Yes (Other)
  Sender: FDA-Public Use
  Company Number: CHPA2012US001094

PATIENT
  Sex: Male

DRUGS (8)
  1. CELEX [Concomitant]
     Dosage: 40 MG, QD
  2. DOXEPIN HCL [Concomitant]
     Indication: INSOMNIA
     Dosage: UNK, UNK
     Route: 048
  3. EXCEDRIN (MIGRAINE) [Suspect]
     Indication: MIGRAINE
     Dosage: 1 TO 2 DF, IN 24 HOURS
     Route: 048
     Dates: start: 20110101, end: 20111201
  4. LORTAB [Suspect]
     Indication: MIGRAINE
     Dosage: UNK, UNK
     Route: 048
  5. XANAX [Concomitant]
  6. DIAZEPAM [Concomitant]
     Dosage: 5 MG, TID AS NEEDED
     Route: 048
  7. INDOMETHACIN [Suspect]
     Indication: GOUT
     Dosage: UNK
  8. DRUG THERAPY NOS [Suspect]
     Dosage: UNK, UNK
     Dates: start: 20111101, end: 20111101

REACTIONS (7)
  - FALL [None]
  - UNDERDOSE [None]
  - BLOOD PRESSURE INCREASED [None]
  - IMPAIRED DRIVING ABILITY [None]
  - HYPOAESTHESIA [None]
  - VERTIGO [None]
  - IMPAIRED WORK ABILITY [None]
